FAERS Safety Report 7207931-8 (Version None)
Quarter: 2010Q4

REPORT INFORMATION
  Report Type: 
  Country: None (occurrence: None)
  Receive Date: 20101221
  Receipt Date: 20101026
  Transmission Date: 20110411
  Serious: Yes (Hospitalization)
  Sender: FDA-Public Use
  Company Number: 018637

PATIENT
  Sex: Female
  Weight: 73 kg

DRUGS (11)
  1. CIMZIA [Suspect]
     Indication: CROHN'S DISEASE
     Dosage: 400 MG 1X/MONTH SUBCUTANEOUS
     Route: 058
     Dates: start: 20091109
  2. METHOTREXATE [Suspect]
  3. FOLIC ACID [Concomitant]
  4. AMITRIPTYLINE [Concomitant]
  5. ALLEGRA [Concomitant]
  6. BENADRYL [Concomitant]
  7. CITALOPRAM HYDROBROMIDE [Concomitant]
  8. CLONAZEPAM [Concomitant]
  9. CYANOCOBALAMIN [Concomitant]
  10. FENTANYL [Concomitant]
  11. LEVOFLOXACIN [Concomitant]

REACTIONS (5)
  - ARTHRALGIA [None]
  - CATHETER SITE INFECTION [None]
  - CELLULITIS [None]
  - SMALL INTESTINAL OBSTRUCTION [None]
  - STAPHYLOCOCCAL BACTERAEMIA [None]
